FAERS Safety Report 5604014-5 (Version None)
Quarter: 2008Q1

REPORT INFORMATION
  Report Type: 
  Country: None (occurrence: None)
  Receive Date: 20080128
  Receipt Date: 20080116
  Transmission Date: 20080703
  Serious: Yes (Hospitalization)
  Sender: FDA-Public Use
  Company Number: PHHO2008FR01231

PATIENT
  Age: 58 Year
  Sex: Male

DRUGS (13)
  1. DEXAMETHASONE TAB [Suspect]
     Dosage: 40 MG, QD
     Route: 048
     Dates: start: 20071204, end: 20071217
  2. VINCRISTINE [Suspect]
     Indication: ACUTE LYMPHOCYTIC LEUKAEMIA
  3. DOXORUBICIN HCL [Suspect]
  4. ENDOXAN [Suspect]
     Indication: ACUTE LYMPHOCYTIC LEUKAEMIA
  5. NEULASTA [Concomitant]
  6. ALLOPURINOL [Concomitant]
  7. NEXIUM [Concomitant]
  8. HUMALOG [Concomitant]
  9. LANTUS [Concomitant]
  10. ALPRAZOLAM [Concomitant]
  11. FUROSEMIDE [Concomitant]
  12. CGP 57148B [Suspect]
     Indication: ACUTE LYMPHOCYTIC LEUKAEMIA
     Dosage: 600 MG, QD
     Route: 048
     Dates: start: 20071204, end: 20071217
  13. CGP 57148B [Suspect]
     Route: 048
     Dates: end: 20071227

REACTIONS (5)
  - CARDIAC FAILURE [None]
  - DILATATION VENTRICULAR [None]
  - LEFT ATRIAL DILATATION [None]
  - PERICARDIAL EFFUSION [None]
  - PULMONARY HYPERTENSION [None]
